FAERS Safety Report 25522209 (Version 1)
Quarter: 2025Q3

REPORT INFORMATION
  Report Type: Report from Study
  Country: US (occurrence: US)
  Receive Date: 20250707
  Receipt Date: 20250707
  Transmission Date: 20251020
  Serious: Yes (Hospitalization)
  Sender: ABBVIE
  Company Number: US-ABBVIE-6357173

PATIENT
  Age: 80 Year
  Sex: Male

DRUGS (1)
  1. SKYRIZI [Suspect]
     Active Substance: RISANKIZUMAB-RZAA
     Indication: Psoriasis
     Route: 058
     Dates: start: 20211003

REACTIONS (8)
  - Syncope [Recovered/Resolved]
  - Psoriasis [Unknown]
  - Fall [Recovered/Resolved]
  - Cognitive disorder [Unknown]
  - Memory impairment [Unknown]
  - Diabetes mellitus [Not Recovered/Not Resolved]
  - Skin exfoliation [Unknown]
  - Burning sensation [Unknown]

NARRATIVE: CASE EVENT DATE: 20231101
